FAERS Safety Report 7805539-4 (Version None)
Quarter: 2011Q4

REPORT INFORMATION
  Report Type: 
  Country: None (occurrence: None)
  Receive Date: 20111010
  Receipt Date: 20111005
  Transmission Date: 20120403
  Serious: Yes (Hospitalization, Disabling, Other)
  Sender: FDA-Public Use
  Company Number: GB-ABBOTT-11P-167-0733702-00

PATIENT
  Age: 15 Year
  Sex: Female

DRUGS (4)
  1. BACLOFEN [Concomitant]
     Indication: PRODUCT USED FOR UNKNOWN INDICATION
     Dates: start: 20090101
  2. GLYCOPYRROLATE [Concomitant]
     Indication: PRODUCT USED FOR UNKNOWN INDICATION
     Dates: start: 20090101
  3. LANSOPRAZOLE [Concomitant]
     Indication: PRODUCT USED FOR UNKNOWN INDICATION
     Dates: start: 20090101
  4. VALPROATE SODIUM [Suspect]
     Indication: EPILEPSY
     Dosage: TWICE A DAY
     Route: 048
     Dates: start: 19970101, end: 20110301

REACTIONS (4)
  - HYPOPHOSPHATAEMIA [None]
  - ACUTE PRERENAL FAILURE [None]
  - RENAL TUBULAR ACIDOSIS [None]
  - DEHYDRATION [None]
